FAERS Safety Report 19996025 (Version 1)
Quarter: 2021Q4

REPORT INFORMATION
  Report Type: Spontaneous
  Country: US (occurrence: US)
  Receive Date: 20211025
  Receipt Date: 20211025
  Transmission Date: 20220303
  Serious: Yes (Other)
  Sender: FDA-Public Use
  Company Number: US-GLAXOSMITHKLINE-USCH2021074247

PATIENT
  Sex: Male

DRUGS (1)
  1. GAS-X MAXIMUM STRENGTH SOFTGELS [Suspect]
     Active Substance: DIMETHICONE
     Indication: Flatulence
     Dosage: UNK

REACTIONS (1)
  - Foreign body in throat [Recovered/Resolved]
